FAERS Safety Report 24463549 (Version 1)
Quarter: 2024Q4

REPORT INFORMATION
  Report Type: Report from Study
  Country: US (occurrence: US)
  Receive Date: 20241018
  Receipt Date: 20241018
  Transmission Date: 20250114
  Serious: No
  Sender: ROCHE
  Company Number: US-ROCHE-3401800

PATIENT
  Age: 70 Year
  Sex: Male
  Weight: 83.91 kg

DRUGS (13)
  1. XOLAIR [Suspect]
     Active Substance: OMALIZUMAB
     Indication: Idiopathic urticaria
     Dosage: ONCE EVERY 8-10 WEEKS, LAST DOSE OF XOLAIR: 20/JUN/2023
     Route: 058
  2. XOLAIR [Suspect]
     Active Substance: OMALIZUMAB
     Indication: Angioedema
     Dosage: INJECT 300MG SUBCUTANEOUSLY EVERY 4-8 WEEKS
     Route: 058
  3. METFORMIN [Concomitant]
     Active Substance: METFORMIN HYDROCHLORIDE
     Dosage: 1000 MG ONCE A DAY ORAL TABLET
  4. LANTUS SOLOSTAR [Concomitant]
     Active Substance: INSULIN GLARGINE
     Dosage: 60 UNITS INJECT DAILY SUBCUTANEOUS PEN
  5. LOSARTAN [Concomitant]
     Active Substance: LOSARTAN
     Dosage: 100 MG ONCE A DAY ORAL TABLET
  6. VICTOZA [Concomitant]
     Active Substance: LIRAGLUTIDE
     Dosage: 18 MG ONCE A DAY SUBCUTANEOUS PEN
  7. METOPROLOL [Concomitant]
     Active Substance: METOPROLOL
     Dosage: 50 MG ONCE A DAY ORAL TABLET
  8. FOLIC ACID [Concomitant]
     Active Substance: FOLIC ACID
     Dosage: 1 MG ONCE A DAY ORAL TABLET
  9. LIPITOR [Concomitant]
     Active Substance: ATORVASTATIN CALCIUM
     Dosage: 10 MG ONCE A DAY ORAL TABLET
  10. ASPIRIN [Concomitant]
     Active Substance: ASPIRIN
     Dosage: 81 MG ONCE A DAY ORAL TABLET
  11. LOVAZA [Concomitant]
     Active Substance: OMEGA-3-ACID ETHYL ESTERS
     Dosage: 1 MG TWICE A DAY OMEGA 3 ESTER ORAL CAPSULE
  12. VITAMIN C [Concomitant]
     Active Substance: ASCORBIC ACID
     Dosage: 250 MG ONCE A DAY ORAL TABLET
  13. CINNAMON [Concomitant]
     Active Substance: CINNAMON
     Dosage: 1000 MG ONCE A DAY ORAL CAPSULE

REACTIONS (2)
  - Off label use [Unknown]
  - Hypoacusis [Unknown]
